FAERS Safety Report 7488014-9 (Version None)
Quarter: 2011Q2

REPORT INFORMATION
  Report Type: 
  Country: None (occurrence: None)
  Receive Date: 20110518
  Receipt Date: 20110512
  Transmission Date: 20111010
  Serious: No
  Sender: FDA-Public Use
  Company Number: US-PFIZER INC-2011096322

PATIENT
  Sex: Female
  Weight: 50 kg

DRUGS (8)
  1. ZYPREXA [Concomitant]
     Dosage: 5 MG, 1X/DAY
  2. SYNTHROID [Concomitant]
     Dosage: 125 UG, 1X/DAY
  3. SERTRALINE [Concomitant]
     Dosage: 25 MG, 1X/DAY
  4. PREMARIN [Suspect]
     Indication: OFF LABEL USE
     Dosage: UNK
     Route: 067
  5. ZOCOR [Concomitant]
     Dosage: 20 MG, 1X/DAY
  6. TRAZODONE [Concomitant]
     Dosage: 50 MG, 1X/DAY
  7. SEROQUEL [Concomitant]
     Dosage: UNK
  8. PREMARIN [Suspect]
     Indication: TRICHOMONIASIS
     Dosage: UNK
     Route: 067

REACTIONS (4)
  - VULVOVAGINAL DISCOMFORT [None]
  - VULVOVAGINAL BURNING SENSATION [None]
  - DRUG INEFFECTIVE FOR UNAPPROVED INDICATION [None]
  - VULVOVAGINAL PRURITUS [None]
